FAERS Safety Report 17767112 (Version 1)
Quarter: 2020Q2

REPORT INFORMATION
  Report Type: Spontaneous
  Country: US (occurrence: US)
  Receive Date: 20200511
  Receipt Date: 20200511
  Transmission Date: 20200714
  Serious: Yes (Death, Hospitalization)
  Sender: FDA-Public Use
  Company Number: US-FRESENIUS KABI-FK202004427

PATIENT
  Sex: Female

DRUGS (5)
  1. IRINOTECAN [Suspect]
     Active Substance: IRINOTECAN
     Indication: PANCREATIC CARCINOMA METASTATIC
     Route: 042
     Dates: start: 20200319
  2. FOLINIC ACID [Suspect]
     Active Substance: LEUCOVORIN
     Indication: PANCREATIC CARCINOMA METASTATIC
     Route: 042
     Dates: start: 20200319
  3. PARICALCITOL. [Suspect]
     Active Substance: PARICALCITOL
     Dosage: C1D8
     Route: 042
     Dates: start: 20200326
  4. PARICALCITOL. [Suspect]
     Active Substance: PARICALCITOL
     Indication: PANCREATIC CARCINOMA METASTATIC
     Route: 042
     Dates: start: 20200319, end: 20200326
  5. FLUOROURACIL (MANUFACTURER UNKNOWN) [Suspect]
     Active Substance: FLUOROURACIL
     Indication: PANCREATIC CARCINOMA METASTATIC
     Route: 065
     Dates: start: 20200319, end: 20200321

REACTIONS (2)
  - Death [Fatal]
  - Coronavirus infection [Unknown]
